FAERS Safety Report 8886982 (Version 1)
Quarter: 2012Q4

REPORT INFORMATION
  Report Type: 
  Country: AR (occurrence: AR)
  Receive Date: 20121105
  Receipt Date: 20121105
  Transmission Date: 20130627
  Serious: Yes (Hospitalization)
  Sender: FDA-Public Use
  Company Number: PHHY2012AR097670

PATIENT
  Sex: Female

DRUGS (1)
  1. ONBREZ [Suspect]
     Indication: DYSPNOEA
     Dosage: 150 ug, UNK
     Dates: start: 201101

REACTIONS (2)
  - Dyspnoea [Unknown]
  - Cyanosis [Unknown]
